FAERS Safety Report 10427445 (Version 2)
Quarter: 2014Q3

REPORT INFORMATION
  Report Type: Spontaneous
  Country: JP (occurrence: JP)
  Receive Date: 20140903
  Receipt Date: 20140922
  Transmission Date: 20150326
  Serious: Yes (Other)
  Sender: FDA-Public Use
  Company Number: JP-MYLAN-2014M1002389

PATIENT
  Age: 2 Year
  Sex: Female

DRUGS (5)
  1. PREDNISOLONE TABLETS 1^HOEI^ [Suspect]
     Active Substance: PREDNISOLONE
     Indication: IMMUNE THROMBOCYTOPENIC PURPURA
     Dosage: 17.5 MG, UNK
     Route: 048
  2. VITAMIN C [Suspect]
     Active Substance: ASCORBIC ACID
     Indication: IMMUNE THROMBOCYTOPENIC PURPURA
     Route: 065
  3. IMMUNOGLOBULIN                     /00025201/ [Suspect]
     Active Substance: HUMAN IMMUNOGLOBULIN G
     Indication: IMMUNE THROMBOCYTOPENIC PURPURA
  4. CEPHARANTHINE [Suspect]
     Active Substance: CEPHARANTHINE
     Indication: IMMUNE THROMBOCYTOPENIC PURPURA
     Route: 065
  5. CICLOSPORIN CAPSULES 10 MG ^MYLAN^ [Suspect]
     Active Substance: CYCLOSPORINE
     Indication: IMMUNE THROMBOCYTOPENIC PURPURA
     Route: 048

REACTIONS (4)
  - Obesity [Recovering/Resolving]
  - Body height below normal [Recovering/Resolving]
  - Varicella [Unknown]
  - Disseminated intravascular coagulation [Unknown]
